FAERS Safety Report 19737846 (Version 1)
Quarter: 2021Q3

REPORT INFORMATION
  Report Type: Spontaneous
  Country: GB (occurrence: GB)
  Receive Date: 20210823
  Receipt Date: 20210823
  Transmission Date: 20211014
  Serious: Yes (Other)
  Sender: FDA-Public Use
  Company Number: GB-ALLERGAN-2129343US

PATIENT
  Sex: Female

DRUGS (10)
  1. TRIHEXYPHENIDYL [Concomitant]
     Active Substance: TRIHEXYPHENIDYL
     Indication: ILL-DEFINED DISORDER
  2. VENTOLIN [Concomitant]
     Active Substance: ALBUTEROL SULFATE
     Indication: ILL-DEFINED DISORDER
  3. LEVODOPA [Concomitant]
     Active Substance: LEVODOPA
     Indication: ILL-DEFINED DISORDER
  4. RELVAR ELLIPTA [Concomitant]
     Active Substance: FLUTICASONE FUROATE\VILANTEROL TRIFENATATE
     Indication: ILL-DEFINED DISORDER
  5. MONTELUKAST SODIUM. [Concomitant]
     Active Substance: MONTELUKAST SODIUM
     Indication: ILL-DEFINED DISORDER
  6. NAPROXENE [Concomitant]
     Active Substance: NAPROXEN
     Indication: ILL-DEFINED DISORDER
  7. BOTOX [Suspect]
     Active Substance: ONABOTULINUMTOXINA
     Indication: ILL-DEFINED DISORDER
     Dosage: 50 UNITS, SINGLE
     Route: 051
     Dates: start: 20210814, end: 20210814
  8. DULOXETINE HYDROCHLORIDE. [Concomitant]
     Active Substance: DULOXETINE HYDROCHLORIDE
     Indication: ILL-DEFINED DISORDER
  9. ZAPAIN [Concomitant]
     Active Substance: ACETAMINOPHEN\CODEINE PHOSPHATE
     Indication: ILL-DEFINED DISORDER
  10. DIAZEPAM. [Concomitant]
     Active Substance: DIAZEPAM
     Indication: ILL-DEFINED DISORDER

REACTIONS (2)
  - Tension headache [Recovering/Resolving]
  - Vomiting [Recovered/Resolved]

NARRATIVE: CASE EVENT DATE: 20210814
